FAERS Safety Report 4625156-7 (Version None)
Quarter: 2005Q2

REPORT INFORMATION
  Report Type: 
  Country: None (occurrence: None)
  Receive Date: 20050325
  Receipt Date: 20050119
  Transmission Date: 20051028
  Serious: No
  Sender: FDA-Public Use
  Company Number: USA050188715

PATIENT
  Age: 89 Year
  Sex: Female
  Weight: 59 kg

DRUGS (2)
  1. FORTEO [Suspect]
     Indication: OSTEOPOROSIS
     Dates: start: 20031201
  2. ADVIL [Concomitant]

REACTIONS (4)
  - BODY HEIGHT DECREASED [None]
  - MACULAR DEGENERATION [None]
  - MEMORY IMPAIRMENT [None]
  - VISUAL DISTURBANCE [None]
